FAERS Safety Report 8152439-9 (Version None)
Quarter: 2012Q1

REPORT INFORMATION
  Report Type: 
  Country: None (occurrence: None)
  Receive Date: 20120215
  Receipt Date: 20120215
  Transmission Date: 20120608
  Serious: Yes (Other)
  Sender: FDA-Public Use
  Company Number: None

PATIENT
  Sex: Female
  Weight: 83.9154 kg

DRUGS (3)
  1. SIMPONI [Suspect]
     Indication: RHEUMATOID ARTHRITIS
     Dosage: 50MG SQ
     Route: 058
     Dates: start: 20120130
  2. SIMPONI [Suspect]
     Indication: PSORIATIC ARTHROPATHY
     Dosage: 50MG SQ
     Route: 058
     Dates: start: 20120130
  3. SIMPONI [Suspect]
     Indication: PSORIASIS
     Dosage: 50MG SQ
     Route: 058
     Dates: start: 20120130

REACTIONS (2)
  - LUNG INFILTRATION [None]
  - CHONDRITIS [None]
